FAERS Safety Report 8928581 (Version 1)
Quarter: 2012Q4

REPORT INFORMATION
  Report Type: Spontaneous
  Country: US (occurrence: None)
  Receive Date: 20121126
  Receipt Date: 20121126
  Transmission Date: 20130627
  Serious: Yes (Life-Threatening)
  Sender: FDA-Public Use
  Company Number: None

PATIENT
  Age: 68 Year
  Sex: Female
  Weight: 55.34 kg

DRUGS (11)
  1. ENBREL [Suspect]
     Indication: PSORIATIC ARTHRITIS
     Dates: start: 20070928, end: 20121114
  2. NIFEDICAL XL [Concomitant]
  3. LOSARTEN/HCTZ [Concomitant]
  4. PREMARIN [Concomitant]
  5. MINOCYCLINE [Concomitant]
  6. PREVACID [Concomitant]
  7. KLOR-CON [Concomitant]
  8. MULTIVITAMIN [Concomitant]
  9. VITAMIN D3 [Concomitant]
  10. ASPIRIN [Concomitant]
  11. LEVOTHYROXINE [Concomitant]

REACTIONS (1)
  - Mycosis fungoides [None]
